FAERS Safety Report 7949993-6 (Version None)
Quarter: 2011Q4

REPORT INFORMATION
  Report Type: 
  Country: None (occurrence: None)
  Receive Date: 20111130
  Receipt Date: 20111125
  Transmission Date: 20120403
  Serious: Yes (Other)
  Sender: FDA-Public Use
  Company Number: DE-BRISTOL-MYERS SQUIBB COMPANY-16018525

PATIENT
  Age: 69 Year
  Sex: Male

DRUGS (10)
  1. ORENCIA [Suspect]
     Indication: RHEUMATOID ARTHRITIS
     Route: 042
     Dates: start: 20110701
  2. AMIODARONE HCL [Concomitant]
  3. SPIRONOLACTONE [Concomitant]
  4. TAMSULOSIN HCL [Concomitant]
  5. PREDNISOLONE [Concomitant]
     Route: 048
  6. DIGITOXIN TAB [Concomitant]
  7. TORSEMIDE [Concomitant]
  8. MARCUMAR [Concomitant]
  9. BISOPROLOL FUMARATE [Concomitant]
  10. LISINOPRIL [Concomitant]

REACTIONS (1)
  - ATRIAL FIBRILLATION [None]
